FAERS Safety Report 9087329 (Version 1)
Quarter: 2013Q1

REPORT INFORMATION
  Report Type: Spontaneous
  Country: IT (occurrence: IT)
  Receive Date: 20130201
  Receipt Date: 20130201
  Transmission Date: 20140127
  Serious: Yes (Life-Threatening, Hospitalization)
  Sender: FDA-Public Use
  Company Number: IT-BRISTOL-MYERS SQUIBB COMPANY-17304692

PATIENT
  Age: 76 Year
  Sex: Male

DRUGS (7)
  1. COUMADIN TABS 5 MG [Suspect]
     Indication: ATRIAL FIBRILLATION
     Route: 048
     Dates: start: 20120101, end: 20130112
  2. TRIATEC [Suspect]
  3. BISOPROLOL HEMIFUMARATE [Suspect]
  4. CARDIOASPIRIN [Suspect]
     Dosage: TABS
     Route: 048
     Dates: start: 20100101, end: 20130112
  5. INSULIN [Concomitant]
  6. CYMBALTA [Concomitant]
  7. PEPTAZOL [Concomitant]

REACTIONS (2)
  - Hypertensive crisis [Recovering/Resolving]
  - Epistaxis [Recovering/Resolving]
